FAERS Safety Report 7310283-6 (Version None)
Quarter: 2011Q1

REPORT INFORMATION
  Report Type: 
  Country: None (occurrence: None)
  Receive Date: 20110224
  Receipt Date: 20110216
  Transmission Date: 20110831
  Serious: Yes (Other)
  Sender: FDA-Public Use
  Company Number: US-US-EMD SERONO, INC.-7042476

PATIENT
  Sex: Female

DRUGS (3)
  1. PREDNISONE [Concomitant]
     Indication: NERVE INJURY
  2. REBIF [Suspect]
     Indication: MULTIPLE SCLEROSIS
     Route: 058
     Dates: start: 20101004
  3. LIDODERM [Concomitant]
     Indication: PAIN

REACTIONS (3)
  - INJECTION SITE HAEMATOMA [None]
  - CATARACT [None]
  - INJECTION SITE ERYTHEMA [None]
